FAERS Safety Report 7397669-9 (Version None)
Quarter: 2011Q2

REPORT INFORMATION
  Report Type: 
  Country: None (occurrence: None)
  Receive Date: 20110406
  Receipt Date: 20110325
  Transmission Date: 20111010
  Serious: Yes (Hospitalization)
  Sender: FDA-Public Use
  Company Number: PHHY2011AU24471

PATIENT
  Age: 46 Year
  Sex: Male

DRUGS (3)
  1. IRBESARTAN AND HYDROCHLOROTHIAZIDE [Interacting]
     Indication: HYPERTENSION
     Dosage: 1 DF/DAY
  2. ESCITALOPRAM [Concomitant]
     Indication: ADJUSTMENT DISORDER WITH DEPRESSED MOOD
     Dosage: 10 MG, IN THE MORNING
  3. QUETIAPINE [Suspect]
     Indication: ADJUSTMENT DISORDER WITH DEPRESSED MOOD
     Dosage: 50 MG, BID

REACTIONS (3)
  - DRUG INTERACTION [None]
  - HYPOTENSION [None]
  - FALL [None]
